FAERS Safety Report 14258205 (Version 1)
Quarter: 2017Q4

REPORT INFORMATION
  Report Type: Report from Study
  Country: None (occurrence: BR)
  Receive Date: 20171207
  Receipt Date: 20171207
  Transmission Date: 20180321
  Serious: Yes (Other)
  Sender: FDA-Public Use
  Company Number: BR-ABBVIE-17K-020-2183950-00

PATIENT
  Sex: Female

DRUGS (1)
  1. HUMIRA [Suspect]
     Active Substance: ADALIMUMAB
     Indication: RHEUMATOID ARTHRITIS
     Route: 058
     Dates: start: 20101107

REACTIONS (10)
  - Gastrooesophageal reflux disease [Unknown]
  - Lipids increased [Unknown]
  - Insomnia [Unknown]
  - Cholelithiasis [Unknown]
  - Sinusitis [Unknown]
  - Hypertonic bladder [Unknown]
  - Hyperglycaemia [Unknown]
  - Liver disorder [Unknown]
  - Furuncle [Unknown]
  - Pharyngitis [Unknown]

NARRATIVE: CASE EVENT DATE: 2015
